FAERS Safety Report 25873903 (Version 1)
Quarter: 2025Q4

REPORT INFORMATION
  Report Type: Spontaneous
  Country: CA (occurrence: CA)
  Receive Date: 20251002
  Receipt Date: 20251002
  Transmission Date: 20260117
  Serious: Yes (Other)
  Sender: RANBAXY
  Company Number: CA-SUN PHARMACEUTICAL INDUSTRIES INC-2025R1-529279

PATIENT
  Sex: Female

DRUGS (1)
  1. CLOBETASOL [Suspect]
     Active Substance: CLOBETASOL
     Indication: Neurodermatitis
     Dosage: UNK
     Route: 061
     Dates: start: 2021

REACTIONS (4)
  - Liquid product physical issue [Unknown]
  - Pruritus [Unknown]
  - Erythema [Unknown]
  - Hypotension [Unknown]
